FAERS Safety Report 13853100 (Version 1)
Quarter: 2017Q3

REPORT INFORMATION
  Report Type: Spontaneous
  Country: US (occurrence: US)
  Receive Date: 20170809
  Receipt Date: 20170809
  Transmission Date: 20171127
  Serious: No
  Sender: FDA-Public Use
  Company Number: US-ASTRAZENECA-2017SE50592

PATIENT
  Sex: Male
  Weight: 81.6 kg

DRUGS (2)
  1. SYMBICORT [Suspect]
     Active Substance: BUDESONIDE\FORMOTEROL FUMARATE DIHYDRATE
     Indication: CHRONIC OBSTRUCTIVE PULMONARY DISEASE
     Dosage: 80/4.5, 120 INHALATIONS,2 PUFFS TWICE A DAY
     Route: 055
     Dates: start: 2017
  2. SYMBICORT [Suspect]
     Active Substance: BUDESONIDE\FORMOTEROL FUMARATE DIHYDRATE
     Indication: CHRONIC OBSTRUCTIVE PULMONARY DISEASE
     Dosage: SOMETIMES HE JUST USES IT IN THE MORNING BECAUSE HE FORGETS TO TAKE IT AT NIGHT SOMETIMES UNKNOWN
     Route: 055

REACTIONS (5)
  - Off label use [Unknown]
  - Drug dose omission [Unknown]
  - Intentional product misuse [Unknown]
  - Cough [Not Recovered/Not Resolved]
  - Device malfunction [Unknown]
